FAERS Safety Report 10563606 (Version 3)
Quarter: 2015Q3

REPORT INFORMATION
  Report Type: Report from Study
  Country: CA (occurrence: CA)
  Receive Date: 20141104
  Receipt Date: 20150809
  Transmission Date: 20151125
  Serious: Yes (Other)
  Sender: FDA-Public Use
  Company Number: CA-BRISTOL-MYERS SQUIBB COMPANY-21535638

PATIENT
  Age: 58 Year
  Sex: Male

DRUGS (5)
  1. ABATACEPT [Suspect]
     Active Substance: ABATACEPT
     Dosage: 125 MG, Q3WK
     Route: 058
     Dates: end: 20140901
  2. NEXIUM [Concomitant]
     Active Substance: ESOMEPRAZOLE MAGNESIUM
     Indication: PRODUCT USED FOR UNKNOWN INDICATION
     Route: 065
  3. ABATACEPT [Suspect]
     Active Substance: ABATACEPT
     Indication: RHEUMATOID ARTHRITIS
     Dosage: 750 MG, Q2WK
     Route: 042
     Dates: start: 201210, end: 201401
  4. PERCOCET [Concomitant]
     Active Substance: ACETAMINOPHEN\OXYCODONE HYDROCHLORIDE
     Indication: PRODUCT USED FOR UNKNOWN INDICATION
     Route: 065
  5. IBUPROFEN. [Concomitant]
     Active Substance: IBUPROFEN
     Indication: PRODUCT USED FOR UNKNOWN INDICATION
     Route: 065

REACTIONS (3)
  - Drug ineffective [Unknown]
  - Intervertebral disc degeneration [Unknown]
  - Spinal operation [Unknown]

NARRATIVE: CASE EVENT DATE: 20141006
